FAERS Safety Report 10093847 (Version 1)
Quarter: 2014Q2

REPORT INFORMATION
  Report Type: Spontaneous
  Country: US (occurrence: US)
  Receive Date: 20140421
  Receipt Date: 20140421
  Transmission Date: 20141212
  Serious: No
  Sender: FDA-Public Use
  Company Number: US-SANOFI-AVENTIS-2013SA084021

PATIENT
  Age: 42 Year
  Sex: Female

DRUGS (9)
  1. ALLEGRA [Suspect]
  2. LUMIZYME [Suspect]
  3. FLEXERIL [Concomitant]
  4. GARLIC [Concomitant]
  5. MOBIC [Concomitant]
  6. MULTIVITAMINS [Concomitant]
  7. OMEPRAZOLE [Concomitant]
  8. REQUIP [Concomitant]
  9. HYDROCHLOROTHIAZIDE WITH TRIAMTERENE [Concomitant]

REACTIONS (1)
  - Rash erythematous [Recovering/Resolving]
